FAERS Safety Report 6373768-5 (Version None)
Quarter: 2009Q3

REPORT INFORMATION
  Report Type: 
  Country: None (occurrence: None)
  Receive Date: 20090924
  Receipt Date: 20090717
  Transmission Date: 20100115
  Serious: Yes (Other)
  Sender: FDA-Public Use
  Company Number: US-ASTRAZENECA-2009UW13452

PATIENT
  Age: 46 Year
  Sex: Female
  Weight: 117.9 kg

DRUGS (9)
  1. SEROQUEL [Suspect]
     Indication: BIPOLAR DISORDER
     Route: 048
     Dates: start: 19970101, end: 20080101
  2. SEROQUEL [Suspect]
     Indication: PSYCHOTIC DISORDER
     Route: 048
     Dates: start: 19970101, end: 20080101
  3. RISPERDAL [Concomitant]
  4. ZYPREXA [Concomitant]
  5. ABILIFY [Concomitant]
     Dates: start: 20090101
  6. GEODON [Concomitant]
  7. HALDOL [Concomitant]
     Dates: start: 20090101
  8. THORAZINE [Concomitant]
  9. TRILAFON [Concomitant]
     Dates: start: 20071101

REACTIONS (7)
  - CHRONIC OBSTRUCTIVE PULMONARY DISEASE [None]
  - EXTRAPYRAMIDAL DISORDER [None]
  - MUSCLE SPASMS [None]
  - PANCREATITIS [None]
  - TARDIVE DYSKINESIA [None]
  - TYPE 1 DIABETES MELLITUS [None]
  - TYPE 2 DIABETES MELLITUS [None]
